FAERS Safety Report 9651043 (Version 3)
Quarter: 2014Q2

REPORT INFORMATION
  Report Type: Report from Study
  Country: BR (occurrence: BR)
  Receive Date: 20131029
  Receipt Date: 20140503
  Transmission Date: 20141212
  Serious: Yes (Other)
  Sender: FDA-Public Use
  Company Number: PHHY2013BR120945

PATIENT
  Age: 66 Year
  Sex: Female

DRUGS (10)
  1. DIOVAN [Suspect]
     Indication: HYPERTENSION
     Dosage: 1 DF (160 MG) DAILY
     Route: 048
     Dates: start: 201310
  2. DIOVAN [Suspect]
     Dosage: 0.5 DF (160 MG) DAILY
     Route: 048
     Dates: start: 20131023
  3. RIVOTRIL [Suspect]
     Indication: ANXIETY
     Dosage: 0.5 DF (2 MG), QD AT NIGHT
     Route: 048
  4. FRONTAL [Suspect]
     Indication: ANXIETY
     Dosage: 1 MG, BID
     Route: 048
  5. PLAVIX [Suspect]
     Indication: HEADACHE
     Dosage: EVERY OTHER DAY
     Route: 048
  6. PLAVIX [Suspect]
     Indication: DIZZINESS
  7. PLAVIX [Suspect]
     Indication: VOMITING
  8. LAXATIVE [Suspect]
     Indication: CONSTIPATION
     Dosage: 46 MG, (ONCE EVERY WEEK)
     Route: 048
  9. BEROTEC [Suspect]
     Indication: ASTHMA
     Dosage: UNK UKN, BID(6 AM, 6 PM)
     Route: 055
  10. BEROTEC [Suspect]
     Indication: DYSPNOEA

REACTIONS (21)
  - Syncope [Recovered/Resolved]
  - Cyanosis [Recovered/Resolved]
  - Loss of consciousness [Unknown]
  - Swelling face [Recovered/Resolved]
  - Hypertension [Recovering/Resolving]
  - Hypotension [Unknown]
  - Vertigo [Recovered/Resolved]
  - Heart rate increased [Recovered/Resolved]
  - Movement disorder [Recovered/Resolved]
  - Erythema [Recovered/Resolved]
  - Jaundice [Recovering/Resolving]
  - Pain in extremity [Not Recovered/Not Resolved]
  - Muscle spasms [Not Recovered/Not Resolved]
  - Groin pain [Recovering/Resolving]
  - Constipation [Not Recovered/Not Resolved]
  - Arthralgia [Recovering/Resolving]
  - Back pain [Recovering/Resolving]
  - Nasopharyngitis [Recovered/Resolved]
  - Rhinitis [Recovered/Resolved]
  - Blood pressure fluctuation [Unknown]
  - Wrong technique in drug usage process [Unknown]
